FAERS Safety Report 6473841-7 (Version None)
Quarter: 2009Q4

REPORT INFORMATION
  Report Type: 
  Country: None (occurrence: None)
  Receive Date: 20091204
  Receipt Date: 20091202
  Transmission Date: 20100525
  Serious: Yes (Hospitalization)
  Sender: FDA-Public Use
  Company Number: FR-ROCHE-672218

PATIENT
  Age: 28 Year
  Sex: Female

DRUGS (5)
  1. RIVOTRIL [Suspect]
     Indication: BIPOLAR DISORDER
     Route: 048
     Dates: start: 20091004
  2. DEPAKOTE [Suspect]
     Indication: DRUG USE FOR UNKNOWN INDICATION
     Route: 048
     Dates: start: 20091004
  3. SOLIAN [Suspect]
     Indication: DRUG USE FOR UNKNOWN INDICATION
     Route: 048
     Dates: start: 20091004, end: 20091014
  4. TERCIAN [Suspect]
     Indication: DRUG USE FOR UNKNOWN INDICATION
     Route: 065
  5. TERCIAN [Suspect]
     Dosage: DOSE REDUCED
     Route: 065
     Dates: start: 20091014

REACTIONS (4)
  - HAEMATOMA [None]
  - MANIA [None]
  - RENAL FAILURE ACUTE [None]
  - RHABDOMYOLYSIS [None]
